FAERS Safety Report 6150831-5 (Version None)
Quarter: 2009Q2

REPORT INFORMATION
  Report Type: 
  Country: None (occurrence: None)
  Receive Date: 20090408
  Receipt Date: 20090320
  Transmission Date: 20091009
  Serious: Yes (Hospitalization)
  Sender: FDA-Public Use
  Company Number: 2009AL001705

PATIENT
  Age: 74 Year
  Sex: Female

DRUGS (13)
  1. DIGOXIN [Suspect]
     Dosage: 0.125MG, DAILY, PO
     Route: 048
  2. COLACE [Concomitant]
  3. TYLENOL [Concomitant]
  4. PROTONIX [Concomitant]
  5. NITROSTAT [Concomitant]
  6. PREDNISONE [Concomitant]
  7. ASPIRIN [Concomitant]
  8. CARDIZEM [Concomitant]
  9. ZOCOR [Concomitant]
  10. LASIX [Concomitant]
  11. METHOTREXATE [Concomitant]
  12. LISINOPRIL [Concomitant]
  13. AMIODARONE HCL [Concomitant]

REACTIONS (5)
  - ACUTE CORONARY SYNDROME [None]
  - ANGINA UNSTABLE [None]
  - ATRIAL FIBRILLATION [None]
  - CARDIAC FAILURE CONGESTIVE [None]
  - MYOCARDIAL INFARCTION [None]
